FAERS Safety Report 8989040 (Version 1)
Quarter: 2012Q4

REPORT INFORMATION
  Report Type: 
  Country: US (occurrence: US)
  Receive Date: 20121228
  Receipt Date: 20121228
  Transmission Date: 20130627
  Serious: Yes (Other)
  Sender: FDA-Public Use
  Company Number: US-ELI_LILLY_AND_COMPANY-US201212007181

PATIENT
  Age: 55 Year
  Sex: Male

DRUGS (4)
  1. PROZAC [Suspect]
  2. WELLBUTRIN [Concomitant]
  3. ZOLOFT [Concomitant]
  4. AMBIEN [Concomitant]

REACTIONS (6)
  - Suicide attempt [Unknown]
  - Homicide [Unknown]
  - Judgement impaired [Unknown]
  - Paranoia [Unknown]
  - Facial nerve disorder [Unknown]
  - Drug ineffective [Unknown]
